FAERS Safety Report 20390609 (Version 1)
Quarter: 2022Q1

REPORT INFORMATION
  Report Type: Spontaneous
  Country: DE (occurrence: DE)
  Receive Date: 20220128
  Receipt Date: 20220128
  Transmission Date: 20220423
  Serious: Yes (Other)
  Sender: FDA-Public Use
  Company Number: DE-MYLANLABS-2022M1007321

PATIENT
  Age: 14 Year
  Sex: Male

DRUGS (1)
  1. BACLOFEN [Suspect]
     Active Substance: BACLOFEN
     Indication: Cerebral palsy
     Dosage: BACLOFEN PUMP
     Route: 037

REACTIONS (8)
  - Device failure [Recovering/Resolving]
  - Muscle spasticity [Recovering/Resolving]
  - Withdrawal syndrome [Recovering/Resolving]
  - Accidental overdose [Recovering/Resolving]
  - Fatigue [Recovering/Resolving]
  - Condition aggravated [Recovering/Resolving]
  - Accidental underdose [Recovering/Resolving]
  - Somnolence [Recovering/Resolving]
